FAERS Safety Report 5396736-9 (Version None)
Quarter: 2007Q3

REPORT INFORMATION
  Report Type: 
  Country: None (occurrence: None)
  Receive Date: 20070725
  Receipt Date: 20070713
  Transmission Date: 20080115
  Serious: Yes (Life-Threatening, Hospitalization)
  Sender: FDA-Public Use
  Company Number: JP-SANOFI-SYNTHELABO-A01200608924

PATIENT
  Sex: Female
  Weight: 70 kg

DRUGS (18)
  1. MINOFIT [Concomitant]
     Indication: HEPATIC FUNCTION ABNORMAL
     Dosage: 3 DF
     Route: 042
     Dates: start: 20061110, end: 20061115
  2. PRODIF [Concomitant]
     Indication: FUNGAL INFECTION
     Dosage: 100 MG
     Route: 042
     Dates: start: 20061101, end: 20061108
  3. FOY [Concomitant]
     Indication: DISSEMINATED INTRAVASCULAR COAGULATION
     Dosage: 500 MG
     Route: 041
     Dates: start: 20061018, end: 20061020
  4. ALBUMIN (HUMAN) [Concomitant]
     Indication: BLOOD ALBUMIN DECREASED
     Dosage: 100 ML
     Route: 041
     Dates: start: 20061013, end: 20061015
  5. DECADRON [Concomitant]
     Indication: PREMEDICATION
     Dosage: 4-16 MG
     Route: 041
     Dates: start: 20061004, end: 20061111
  6. KYTRIL [Concomitant]
     Indication: PREMEDICATION
     Dosage: 1 DF
     Route: 041
     Dates: start: 20061004, end: 20061110
  7. LASIX [Concomitant]
     Indication: PLEURAL EFFUSION
     Dosage: 10 MG
     Route: 042
     Dates: start: 20061002, end: 20061111
  8. LEUCOVORIN CALCIUM [Suspect]
     Indication: LARGE INTESTINE CARCINOMA
     Dosage: 325 MG
     Route: 041
     Dates: start: 20061004, end: 20061004
  9. LEUCOVORIN CALCIUM [Suspect]
     Dosage: 150 MG
     Route: 041
     Dates: start: 20061025, end: 20061025
  10. LEUCOVORIN CALCIUM [Suspect]
     Dosage: 200 MG
     Route: 041
     Dates: start: 20061109, end: 20061109
  11. MEROPEN [Concomitant]
     Indication: WHITE BLOOD CELL COUNT INCREASED
     Dosage: 0.5 G X 2
     Route: 041
     Dates: start: 20060926, end: 20061007
  12. OXALIPLATIN [Suspect]
     Indication: LARGE INTESTINE CARCINOMA
     Dosage: 100 MG
     Route: 041
     Dates: start: 20061004, end: 20061004
  13. OXALIPLATIN [Suspect]
     Dosage: 70 MG
     Route: 041
     Dates: start: 20061025, end: 20061025
  14. OXALIPLATIN [Suspect]
     Dosage: 85 MG
     Route: 041
     Dates: start: 20061109, end: 20061109
  15. ADALAT [Concomitant]
     Indication: HYPERTENSION
     Dosage: 20MG-40 MG
     Route: 048
     Dates: start: 20060811, end: 20061111
  16. FLUOROURACIL [Suspect]
     Indication: LARGE INTESTINE CARCINOMA
     Dosage: 500 MG/BODY = 299.4 MG/M2 BOLUS THEN 4000 MG/BODY = 2395.2 MG/M2 INFUSION
     Route: 042
     Dates: start: 20061004, end: 20061004
  17. FLUOROURACIL [Suspect]
     Dosage: 325 MG/BODY = 194.6 MG/M2 BOLUS THEN 2000 MG/BODY = 1197.6 MG/M2 INFUSION
     Route: 042
     Dates: start: 20061025, end: 20061025
  18. FLUOROURACIL [Suspect]
     Dosage: 400 MG/BODY = 239.5 MG/M2 BOLUS THEN 2500 MG/BODY = 1497.0 MG/M2 INFUSION
     Route: 042
     Dates: start: 20061109, end: 20061109

REACTIONS (2)
  - HAEMOGLOBIN DECREASED [None]
  - HYPERAMMONAEMIA [None]
